FAERS Safety Report 5518800-3 (Version None)
Quarter: 2007Q4

REPORT INFORMATION
  Report Type: 
  Country: None (occurrence: None)
  Receive Date: 20071115
  Receipt Date: 20071108
  Transmission Date: 20080405
  Serious: Yes (Other)
  Sender: FDA-Public Use
  Company Number: ES-ALLERGAN-0712449US

PATIENT

DRUGS (4)
  1. BOTOX [Suspect]
     Indication: STRABISMUS
     Dosage: 5 UNITS, SINGLE
     Route: 030
  2. NITROUS OXIDE [Concomitant]
     Route: 055
  3. KETAMINE HCL [Concomitant]
     Route: 030
  4. SEVOFLURANE [Concomitant]

REACTIONS (1)
  - STRABISMUS [None]
